FAERS Safety Report 6287689-X (Version None)
Quarter: 2009Q3

REPORT INFORMATION
  Report Type: 
  Country: None (occurrence: None)
  Receive Date: 20090727
  Receipt Date: 20090727
  Transmission Date: 20100115
  Serious: No
  Sender: FDA-Public Use
  Company Number: None

PATIENT
  Age: 27 Year
  Sex: Female
  Weight: 58.9676 kg

DRUGS (2)
  1. PROVENTIL-HFA [Suspect]
     Indication: ASTHENIA
     Dosage: 2 PUFFS - 180 MCG TOTAL, 1, INHAL
     Route: 055
     Dates: start: 20090714, end: 20090714
  2. PROVENTIL-HFA [Suspect]
     Indication: DYSPNOEA
     Dosage: 2 PUFFS - 180 MCG TOTAL, 1, INHAL
     Route: 055
     Dates: start: 20090714, end: 20090714

REACTIONS (1)
  - NO THERAPEUTIC RESPONSE [None]
